FAERS Safety Report 19057363 (Version 1)
Quarter: 2021Q1

REPORT INFORMATION
  Report Type: Spontaneous
  Country: US (occurrence: US)
  Receive Date: 20210325
  Receipt Date: 20210325
  Transmission Date: 20210420
  Serious: Yes (Other)
  Sender: FDA-Public Use
  Company Number: US-JNJFOC-20210328158

PATIENT
  Sex: Male

DRUGS (11)
  1. SPRAVATO [Suspect]
     Active Substance: ESKETAMINE
     Dosage: 112, TOTAL 2 DOSES
     Dates: start: 20200410, end: 20200414
  2. SPRAVATO [Suspect]
     Active Substance: ESKETAMINE
     Dosage: 56 MG, TOTAL 1 DOSE
     Dates: start: 20200418, end: 20200418
  3. SPRAVATO [Suspect]
     Active Substance: ESKETAMINE
     Dosage: 112, TOTAL 18 DOSES
     Dates: start: 20200421, end: 20200523
  4. SPRAVATO [Suspect]
     Active Substance: ESKETAMINE
     Dosage: 112, TOTAL 2 DOSES
     Dates: start: 20210301, end: 20210310
  5. SPRAVATO [Suspect]
     Active Substance: ESKETAMINE
     Dosage: 56 MG, TOTAL 1 DOSE
     Dates: start: 20200626, end: 20200626
  6. SPRAVATO [Suspect]
     Active Substance: ESKETAMINE
     Dosage: 56 MG, TOTAL 2 DOSES
     Dates: start: 20200714, end: 20210212
  7. SPRAVATO [Suspect]
     Active Substance: ESKETAMINE
     Dosage: 84 MG, TOTAL 7 DOSES
     Dates: start: 20200303, end: 20200408
  8. SPRAVATO [Suspect]
     Active Substance: ESKETAMINE
     Dosage: 112, TOTAL 1 DOSE
     Dates: start: 20210225, end: 20210225
  9. SPRAVATO [Suspect]
     Active Substance: ESKETAMINE
     Indication: DEPRESSION
     Dosage: 56 MG, TOTAL 2 DOSES
     Dates: start: 20200225
  10. SPRAVATO [Suspect]
     Active Substance: ESKETAMINE
     Dosage: 84 MG, TOTAL 1 DOSE
     Dates: start: 20210223, end: 20210223
  11. SPRAVATO [Suspect]
     Active Substance: ESKETAMINE
     Dosage: 112, TOTAL 2 DOSES
     Dates: start: 20200707, end: 20200710

REACTIONS (2)
  - Depression [Unknown]
  - Suicidal ideation [Unknown]
